FAERS Safety Report 11965429 (Version 1)
Quarter: 2016Q1

REPORT INFORMATION
  Report Type: Spontaneous
  Country: US (occurrence: None)
  Receive Date: 20160125
  Receipt Date: 20160125
  Transmission Date: 20160526
  Serious: Yes (Other)
  Sender: FDA-Public Use
  Company Number: None

PATIENT
  Age: 22 Year
  Sex: Female
  Weight: 46.2 kg

DRUGS (12)
  1. VITAMIN D3 [Concomitant]
     Active Substance: CHOLECALCIFEROL
  2. PULMOYZME [Concomitant]
  3. NEXPLANON [Concomitant]
     Active Substance: ETONOGESTREL
  4. AQUADEK VITAMIN [Concomitant]
  5. URSODIOL. [Concomitant]
     Active Substance: URSODIOL
  6. ORKAMBI [Suspect]
     Active Substance: IVACAFTOR\LUMACAFTOR
     Indication: CYSTIC FIBROSIS LUNG
     Dosage: 2 PILLS BID ORAL
     Route: 048
     Dates: start: 20160114, end: 20160114
  7. HORMONAL IMPLANT [Concomitant]
  8. FLOVENT [Concomitant]
     Active Substance: FLUTICASONE PROPIONATE
  9. CREON [Concomitant]
     Active Substance: PANCRELIPASE AMYLASE\PANCRELIPASE LIPASE\PANCRELIPASE PROTEASE
  10. VITAMIN K [Concomitant]
     Active Substance: PHYTONADIONE
  11. MIRALAX [Concomitant]
     Active Substance: POLYETHYLENE GLYCOL 3350
  12. TOBI PODHALER [Concomitant]
     Active Substance: TOBRAMYCIN

REACTIONS (4)
  - Throat irritation [None]
  - Abdominal pain upper [None]
  - Pruritus [None]
  - Eye swelling [None]

NARRATIVE: CASE EVENT DATE: 20160114
